FAERS Safety Report 9837826 (Version 1)
Quarter: 2014Q1

REPORT INFORMATION
  Report Type: Spontaneous
  Country: CA (occurrence: CA)
  Receive Date: 20140123
  Receipt Date: 20140123
  Transmission Date: 20141002
  Serious: Yes (Hospitalization)
  Sender: FDA-Public Use
  Company Number: CA-ASTRAZENECA-2014SE03647

PATIENT
  Age: 67 Year
  Sex: Female
  Weight: 71 kg

DRUGS (2)
  1. FASLODEX [Suspect]
     Route: 030
  2. HYDROMORPHONE [Suspect]
     Route: 048

REACTIONS (1)
  - Delirium [Recovered/Resolved]
